FAERS Safety Report 9415534 (Version 1)
Quarter: 2013Q3

REPORT INFORMATION
  Report Type: Spontaneous
  Country: CA (occurrence: CA)
  Receive Date: 20130723
  Receipt Date: 20130723
  Transmission Date: 20140515
  Serious: Yes (Hospitalization)
  Sender: FDA-Public Use
  Company Number: CA-AMGEN-CANSP2013050455

PATIENT
  Age: 50 Year
  Sex: Male

DRUGS (4)
  1. NEULASTA [Suspect]
     Indication: PRODUCT USED FOR UNKNOWN INDICATION
     Dosage: 10MG/1.0ML, UNK
     Route: 065
     Dates: start: 20130610, end: 20130610
  2. FRAGMIN [Concomitant]
     Dosage: UNK
  3. APO-AMOXI CLAV [Concomitant]
     Dosage: 125 MG, 1 TABLET 3X PER DAY FOR 14 DAYS
  4. MORPHINE [Concomitant]
     Dosage: 5 MG, Q4H

REACTIONS (6)
  - Dehydration [Recovered/Resolved]
  - Diarrhoea [Recovered/Resolved]
  - Vomiting [Unknown]
  - Aphagia [Unknown]
  - Drug ineffective [Unknown]
  - Blood count abnormal [Not Recovered/Not Resolved]
